FAERS Safety Report 13834272 (Version 4)
Quarter: 2018Q1

REPORT INFORMATION
  Report Type: Spontaneous
  Country: US (occurrence: US)
  Receive Date: 20170804
  Receipt Date: 20180130
  Transmission Date: 20180508
  Serious: Yes (Hospitalization)
  Sender: FDA-Public Use
  Company Number: US-PFIZER INC-2017334090

PATIENT
  Age: 72 Year
  Sex: Female

DRUGS (2)
  1. XELJANZ XR [Suspect]
     Active Substance: TOFACITINIB CITRATE
     Indication: RHEUMATOID ARTHRITIS
     Dosage: 11 MG, 1X/DAY
     Route: 048
     Dates: start: 201606
  2. OFLOXACIN. [Concomitant]
     Active Substance: OFLOXACIN
     Dosage: UNK

REACTIONS (5)
  - Medication residue present [Not Recovered/Not Resolved]
  - Malabsorption [Not Recovered/Not Resolved]
  - Sepsis [Unknown]
  - Urinary tract infection [Unknown]
  - Pneumonia [Unknown]
